FAERS Safety Report 4865632-5 (Version None)
Quarter: 2005Q4

REPORT INFORMATION
  Report Type: 
  Country: None (occurrence: None)
  Receive Date: 20051220
  Receipt Date: 20051207
  Transmission Date: 20060501
  Serious: Yes (Other)
  Sender: FDA-Public Use
  Company Number: 2005165476

PATIENT
  Sex: Male
  Weight: 97.5234 kg

DRUGS (3)
  1. VIAGRA [Suspect]
     Indication: ERECTILE DYSFUNCTION
     Dosage: 25 MG, AS NECESSARY
  2. CIALIS [Concomitant]
  3. AVODART [Concomitant]

REACTIONS (3)
  - DRUG EFFECT DECREASED [None]
  - JOINT INJURY [None]
  - SPORTS INJURY [None]
